FAERS Safety Report 23257171 (Version 1)
Quarter: 2023Q4

REPORT INFORMATION
  Report Type: Other
  Country: PK (occurrence: None)
  Receive Date: 20231204
  Receipt Date: 20231204
  Transmission Date: 20240110
  Serious: Yes (Other)
  Sender: FDA-Public Use
  Company Number: PK-ROCHE-3465903

PATIENT
  Age: 63 Year
  Sex: Female

DRUGS (3)
  1. MABTHERA [Suspect]
     Active Substance: RITUXIMAB
     Indication: Follicular lymphoma
     Dosage: BATCH NUMBER WAS REQUESTED AND NOT AVAILABLE WITH THE REPORTER
     Route: 058
     Dates: start: 20231031
  2. MABTHERA [Suspect]
     Active Substance: RITUXIMAB
     Route: 058
     Dates: start: 2022, end: 20220905
  3. RITUXIMAB [Suspect]
     Active Substance: RITUXIMAB
     Indication: Follicular lymphoma
     Route: 065
     Dates: start: 2018, end: 201903

REACTIONS (1)
  - Follicular lymphoma recurrent [Unknown]
